FAERS Safety Report 21872107 (Version 1)
Quarter: 2023Q1

REPORT INFORMATION
  Report Type: Spontaneous
  Country: US (occurrence: US)
  Receive Date: 20230117
  Receipt Date: 20230117
  Transmission Date: 20230418
  Serious: Yes (Life-Threatening)
  Sender: FDA-Public Use
  Company Number: US-002147023-NVSC2023US006870

PATIENT
  Age: 76 Year
  Sex: Female

DRUGS (2)
  1. RECLAST [Suspect]
     Active Substance: ZOLEDRONIC ACID
     Indication: Bone deformity
     Dosage: UNK (INFUSION)
     Route: 065
     Dates: start: 20221020
  2. RECLAST [Suspect]
     Active Substance: ZOLEDRONIC ACID
     Indication: Osteoporosis

REACTIONS (14)
  - Hypersensitivity [Unknown]
  - Near death experience [Unknown]
  - Feeling abnormal [Unknown]
  - Sneezing [Unknown]
  - Rhinorrhoea [Unknown]
  - Respiratory tract congestion [Unknown]
  - Dysphagia [Unknown]
  - Dysphonia [Unknown]
  - Malaise [Unknown]
  - Dyspnoea [Unknown]
  - Musculoskeletal chest pain [Unknown]
  - COVID-19 [Unknown]
  - Cough [Unknown]
  - Pyrexia [Unknown]

NARRATIVE: CASE EVENT DATE: 20221020
